FAERS Safety Report 19131870 (Version 4)
Quarter: 2021Q3

REPORT INFORMATION
  Report Type: Spontaneous
  Country: US (occurrence: US)
  Receive Date: 20210413
  Receipt Date: 20210804
  Transmission Date: 20211014
  Serious: Yes (Other)
  Sender: FDA-Public Use
  Company Number: US-PFIZER INC-2021381444

PATIENT
  Age: 64 Year
  Sex: Female

DRUGS (2)
  1. XELJANZ XR [Suspect]
     Active Substance: TOFACITINIB CITRATE
     Indication: RHEUMATOID ARTHRITIS
     Dosage: 11 MG, DAILY
     Route: 048
     Dates: start: 202103, end: 202103
  2. XELJANZ XR [Suspect]
     Active Substance: TOFACITINIB CITRATE
     Dosage: 11 MG, DAILY
     Route: 048
     Dates: start: 202104

REACTIONS (11)
  - Balance disorder [Recovered/Resolved]
  - Sensitivity to weather change [Unknown]
  - Middle insomnia [Unknown]
  - Underdose [Unknown]
  - Thyroiditis [Unknown]
  - Discouragement [Unknown]
  - Hypothyroidism [Recovered/Resolved]
  - Malaise [Recovered/Resolved]
  - Peripheral swelling [Recovered/Resolved]
  - Thyroid function test abnormal [Recovered/Resolved]
  - Depressed mood [Unknown]

NARRATIVE: CASE EVENT DATE: 202103
